FAERS Safety Report 5326341-1 (Version None)
Quarter: 2007Q2

REPORT INFORMATION
  Report Type: 
  Country: None (occurrence: None)
  Receive Date: 20070516
  Receipt Date: 20070510
  Transmission Date: 20071010
  Serious: Yes (Other)
  Sender: FDA-Public Use
  Company Number: A0650842A

PATIENT

DRUGS (1)
  1. IMITREX [Suspect]
     Indication: MIGRAINE
     Dosage: 100MG UNKNOWN
     Route: 048

REACTIONS (3)
  - CONVULSION [None]
  - DRUG INEFFECTIVE [None]
  - HEADACHE [None]
